FAERS Safety Report 8608708-9 (Version None)
Quarter: 2012Q3

REPORT INFORMATION
  Report Type: 
  Country: None (occurrence: None)
  Receive Date: 20120821
  Receipt Date: 20120813
  Transmission Date: 20120928
  Serious: Yes (Other)
  Sender: FDA-Public Use
  Company Number: US-PURDUE-USA-2012-0090828

PATIENT
  Age: 45 Year
  Sex: Female
  Weight: 90.703 kg

DRUGS (8)
  1. BUTRANS [Suspect]
     Indication: COMPLEX REGIONAL PAIN SYNDROME
  2. BUTRANS [Suspect]
     Indication: PAIN
  3. NUCYNTA [Concomitant]
     Indication: PRODUCT USED FOR UNKNOWN INDICATION
     Dosage: 50 MG, Q6H PRN
  4. BACLOFEN [Concomitant]
     Indication: PRODUCT USED FOR UNKNOWN INDICATION
     Dosage: 10 MG, Q6H PRN
  5. AMBIEN [Concomitant]
     Indication: PRODUCT USED FOR UNKNOWN INDICATION
     Dosage: 10 MG, DAILY
  6. KEPPRA [Concomitant]
     Indication: PRODUCT USED FOR UNKNOWN INDICATION
     Dosage: 1000 MG, DAILY
  7. XYZAL [Concomitant]
     Indication: PRODUCT USED FOR UNKNOWN INDICATION
     Dosage: 5 MG, DAILY
  8. BUTRANS [Suspect]
     Indication: NEURALGIA
     Dosage: 10 MCG/HR, WEEKLY
     Route: 062
     Dates: start: 20110101

REACTIONS (13)
  - STRESS [None]
  - HEADACHE [None]
  - MUSCLE SPASMS [None]
  - APPLICATION SITE PRURITUS [None]
  - APPLICATION SITE SWELLING [None]
  - HYPERHIDROSIS [None]
  - APPLICATION SITE DRYNESS [None]
  - APPLICATION SITE PAIN [None]
  - NECK SURGERY [None]
  - APPLICATION SITE IRRITATION [None]
  - FEELING COLD [None]
  - INSOMNIA [None]
  - APPLICATION SITE BURN [None]
